FAERS Safety Report 6969324-8 (Version None)
Quarter: 2010Q3

REPORT INFORMATION
  Report Type: 
  Country: None (occurrence: None)
  Receive Date: 20100907
  Receipt Date: 20100826
  Transmission Date: 20110219
  Serious: Yes (Hospitalization, Other)
  Sender: FDA-Public Use
  Company Number: US-ELI_LILLY_AND_COMPANY-US201006000933

PATIENT
  Sex: Female
  Weight: 56.689 kg

DRUGS (4)
  1. GEMZAR [Suspect]
     Indication: OVARIAN CANCER
     Dosage: 1000 MG/M2, OTHER
     Route: 042
     Dates: start: 20100330, end: 20100518
  2. GEMZAR [Suspect]
     Dosage: 1500 MG/M2, OTHER
     Route: 042
  3. GEMZAR [Suspect]
     Dosage: 1200 MG/M2, OTHER
     Route: 042
     Dates: end: 20100518
  4. VESICARE [Concomitant]

REACTIONS (3)
  - ANAEMIA [None]
  - GASTROINTESTINAL HAEMORRHAGE [None]
  - ISCHAEMIA [None]
